FAERS Safety Report 9861932 (Version 2)
Quarter: 2014Q3

REPORT INFORMATION
  Report Type: Spontaneous
  Country: IT (occurrence: IT)
  Receive Date: 20140203
  Receipt Date: 20140711
  Transmission Date: 20150326
  Serious: Yes (Life-Threatening)
  Sender: FDA-Public Use
  Company Number: IT-ROCHE-1342760

PATIENT
  Age: 33 Year
  Sex: Female

DRUGS (1)
  1. MABTHERA [Suspect]
     Active Substance: RITUXIMAB
     Indication: GLOMERULONEPHRITIS
     Route: 042
     Dates: start: 20131214, end: 20140109

REACTIONS (2)
  - Laryngeal oedema [Recovered/Resolved]
  - Off label use [Unknown]

NARRATIVE: CASE EVENT DATE: 20140109
